FAERS Safety Report 9174005 (Version 2)
Quarter: 2013Q1

REPORT INFORMATION
  Report Type: Spontaneous
  Country: US (occurrence: None)
  Receive Date: 20130318
  Receipt Date: 20130319
  Transmission Date: 20140127
  Serious: Yes (Hospitalization, Other)
  Sender: FDA-Public Use
  Company Number: ADR-2012-01498

PATIENT
  Sex: Female

DRUGS (6)
  1. BACLOFEN INTRATHECAL (BACLOFEN INJECTION) [Suspect]
     Indication: PAIN
  2. BUPIVCAINE [Concomitant]
  3. MORPHINE [Concomitant]
  4. METHADONE [Concomitant]
  5. DILAUDID [Concomitant]
  6. INDOCET [Concomitant]

REACTIONS (9)
  - Pain in extremity [None]
  - Muscle spasticity [None]
  - Disease recurrence [None]
  - Decubitus ulcer [None]
  - Burkholderia pseudomallei infection [None]
  - Pathogen resistance [None]
  - Unevaluable event [None]
  - Osteomyelitis [None]
  - No therapeutic response [None]
